FAERS Safety Report 6305533-9 (Version None)
Quarter: 2009Q3

REPORT INFORMATION
  Report Type: 
  Country: None (occurrence: None)
  Receive Date: 20090807
  Receipt Date: 20090729
  Transmission Date: 20100115
  Serious: Yes (Other)
  Sender: FDA-Public Use
  Company Number: 2009SP017572

PATIENT
  Age: 42 Year
  Sex: Female

DRUGS (8)
  1. POSACONAZOLE [Suspect]
     Dates: start: 20090709, end: 20090714
  2. VORICONAZOLE [Suspect]
     Dates: start: 20090629, end: 20090708
  3. ALENDRONIC ACID [Concomitant]
  4. AZITHROMYCIN [Concomitant]
  5. COTRIM [Concomitant]
  6. CYCLIZINE [Concomitant]
  7. HYDROCORTIZONE [Concomitant]
  8. OMEPRAZOLE [Concomitant]

REACTIONS (3)
  - ENCEPHALITIS [None]
  - ENCEPHALOPATHY [None]
  - HEPATIC FUNCTION ABNORMAL [None]
